FAERS Safety Report 12567486 (Version 2)
Quarter: 2017Q3

REPORT INFORMATION
  Report Type: Spontaneous
  Country: US (occurrence: US)
  Receive Date: 20160718
  Receipt Date: 20170713
  Transmission Date: 20171127
  Serious: No
  Sender: FDA-Public Use
  Company Number: US-ASTELLAS-2016US024189

PATIENT
  Age: 72 Year
  Sex: Female

DRUGS (1)
  1. MYRBETRIQ [Suspect]
     Active Substance: MIRABEGRON
     Indication: HYPERTONIC BLADDER
     Route: 048
     Dates: start: 201604

REACTIONS (6)
  - Intentional product misuse [Unknown]
  - Movement disorder [Unknown]
  - Musculoskeletal pain [Recovered/Resolved]
  - Pain [Recovering/Resolving]
  - Pollakiuria [Unknown]
  - Drug ineffective [Unknown]

NARRATIVE: CASE EVENT DATE: 201604
